FAERS Safety Report 9228382 (Version 1)
Quarter: 2013Q2

REPORT INFORMATION
  Report Type: Spontaneous
  Country: TW (occurrence: TW)
  Receive Date: 20130412
  Receipt Date: 20130412
  Transmission Date: 20140414
  Serious: Yes (Other)
  Sender: FDA-Public Use
  Company Number: TW-PFIZER INC-2013114584

PATIENT
  Sex: 0

DRUGS (1)
  1. ABIPLATIN [Suspect]
     Dosage: 50MG/100ML/VIAL

REACTIONS (1)
  - Anaphylactic shock [Unknown]
